FAERS Safety Report 7671316-0 (Version None)
Quarter: 2011Q3

REPORT INFORMATION
  Report Type: 
  Country: None (occurrence: None)
  Receive Date: 20110809
  Receipt Date: 20110729
  Transmission Date: 20111222
  Serious: Yes (Other)
  Sender: FDA-Public Use
  Company Number: FR-JNJFOC-20110610713

PATIENT
  Age: 23 Year
  Sex: Female
  Weight: 61 kg

DRUGS (9)
  1. REMICADE [Suspect]
     Indication: ANORECTAL DISORDER
     Route: 042
     Dates: start: 20081013
  2. REMICADE [Suspect]
     Route: 042
     Dates: start: 20080917
  3. REMICADE [Suspect]
     Route: 042
  4. REMICADE [Suspect]
     Indication: CROHN'S DISEASE
     Route: 042
     Dates: start: 20081013
  5. REMICADE [Suspect]
     Route: 042
  6. PENTASA [Concomitant]
  7. REMICADE [Suspect]
     Route: 042
     Dates: start: 20080902
  8. REMICADE [Suspect]
     Route: 042
     Dates: start: 20080902
  9. REMICADE [Suspect]
     Route: 042
     Dates: start: 20080917

REACTIONS (2)
  - ANTINUCLEAR ANTIBODY [None]
  - ARTHROPATHY [None]
